FAERS Safety Report 7571581-4 (Version None)
Quarter: 2011Q2

REPORT INFORMATION
  Report Type: 
  Country: None (occurrence: None)
  Receive Date: 20110624
  Receipt Date: 20110621
  Transmission Date: 20111010
  Serious: Yes (Death, Hospitalization)
  Sender: FDA-Public Use
  Company Number: US-BRISTOL-MYERS SQUIBB COMPANY-15848492

PATIENT
  Age: 75 Year
  Sex: Male
  Weight: 75 kg

DRUGS (10)
  1. TAXOTERE [Suspect]
     Indication: LUNG SQUAMOUS CELL CARCINOMA STAGE IV
     Dates: start: 20110324, end: 20110324
  2. PANTOPRAZOLE [Concomitant]
     Dates: start: 20110101
  3. DEXAMETHASONE [Concomitant]
     Indication: PREMEDICATION
     Dates: start: 20110324, end: 20110324
  4. ASPIRIN [Concomitant]
     Dates: start: 20110101
  5. CARBOPLATIN [Suspect]
     Indication: LUNG SQUAMOUS CELL CARCINOMA STAGE IV
     Dosage: 1DF=2AUC
     Dates: start: 20110324, end: 20110324
  6. LORTAB [Concomitant]
     Dates: start: 20110101
  7. GLIMEPIRIDE [Concomitant]
     Dates: start: 20110101
  8. CRESTOR [Concomitant]
     Dates: start: 20110101
  9. GEMCITABINE [Concomitant]
     Dates: end: 20110301
  10. PROCHLORPERAZINE TAB [Concomitant]
     Dates: start: 20110101

REACTIONS (11)
  - ASTHENIA [None]
  - HYPOTENSION [None]
  - TACHYCARDIA [None]
  - DEHYDRATION [None]
  - NAUSEA [None]
  - URINARY TRACT INFECTION [None]
  - HYPONATRAEMIA [None]
  - DECREASED APPETITE [None]
  - ANAEMIA [None]
  - RENAL FAILURE ACUTE [None]
  - HYPOPHAGIA [None]
